FAERS Safety Report 15473222 (Version 1)
Quarter: 2018Q4

REPORT INFORMATION
  Report Type: Spontaneous
  Country: US (occurrence: US)
  Receive Date: 20181008
  Receipt Date: 20181008
  Transmission Date: 20190205
  Serious: No
  Sender: FDA-Public Use
  Company Number: US-GALDERMA-US18004710

PATIENT
  Age: 63 Year
  Sex: Female

DRUGS (1)
  1. MIRVASO [Suspect]
     Active Substance: BRIMONIDINE TARTRATE
     Indication: ROSACEA
     Dosage: 0.33%
     Route: 061
     Dates: start: 201704, end: 201709

REACTIONS (5)
  - Rosacea [Recovering/Resolving]
  - Skin irritation [Recovering/Resolving]
  - Rebound effect [Not Recovered/Not Resolved]
  - Flushing [Recovering/Resolving]
  - Drug effect decreased [Recovered/Resolved]

NARRATIVE: CASE EVENT DATE: 201709
